FAERS Safety Report 7901438-8 (Version None)
Quarter: 2011Q4

REPORT INFORMATION
  Report Type: 
  Country: None (occurrence: None)
  Receive Date: 20111108
  Receipt Date: 20111101
  Transmission Date: 20120403
  Serious: Yes (Other)
  Sender: FDA-Public Use
  Company Number: BR-B.I. PHARMACEUTICALS,INC./RIDGEFIELD-2011-BR-01203BR

PATIENT
  Age: 29 Year
  Sex: Male

DRUGS (2)
  1. ACETAMINOPHEN W/ CODEINE [Concomitant]
     Indication: KNEE ARTHROPLASTY
     Route: 048
     Dates: start: 20111019, end: 20111101
  2. PRADAXA [Suspect]
     Indication: KNEE ARTHROPLASTY
     Route: 048
     Dates: start: 20111019, end: 20111101

REACTIONS (2)
  - URTICARIA [None]
  - ERYTHEMA [None]
